APPROVED DRUG PRODUCT: NIPRIDE RTU IN SODIUM CHLORIDE 0.9%
Active Ingredient: SODIUM NITROPRUSSIDE
Strength: 50MG/100ML (0.5MG/ML)
Dosage Form/Route: SOLUTION;INTRAVENOUS
Application: N209387 | Product #001 | TE Code: AP
Applicant: EXELA PHARMA SCIENCES LLC
Approved: Mar 8, 2017 | RLD: Yes | RS: Yes | Type: RX